FAERS Safety Report 5235216-8 (Version None)
Quarter: 2007Q1

REPORT INFORMATION
  Report Type: 
  Country: None (occurrence: None)
  Receive Date: 20070208
  Receipt Date: 20070208
  Transmission Date: 20070707
  Serious: Yes (Other)
  Sender: FDA-Public Use
  Company Number: None

PATIENT
  Sex: Female
  Weight: 62.1428 kg

DRUGS (2)
  1. METHYLPREDNISOLONE 4MG TAB [Suspect]
     Indication: POST PROCEDURAL COMPLICATION
     Dosage: 4 MG, 21 TABLETS, 6 DAYS, DECREASE EACH DAY PO
     Route: 048
     Dates: start: 20070206, end: 20070207
  2. METHYLPREDNISOLONE 4MG TAB [Suspect]
     Indication: RASH
     Dosage: 4 MG, 21 TABLETS, 6 DAYS, DECREASE EACH DAY PO
     Route: 048
     Dates: start: 20070206, end: 20070207

REACTIONS (6)
  - ACNE [None]
  - DIZZINESS [None]
  - ERYTHEMA [None]
  - SKIN IRRITATION [None]
  - SWELLING FACE [None]
  - VISION BLURRED [None]
